FAERS Safety Report 25789441 (Version 1)
Quarter: 2025Q3

REPORT INFORMATION
  Report Type: Spontaneous
  Country: US (occurrence: US)
  Receive Date: 20250911
  Receipt Date: 20250911
  Transmission Date: 20251020
  Serious: Yes (Other)
  Sender: COOPERSURGICAL
  Company Number: US-COOPERSURGICAL, INC.-2025CPS006503

PATIENT
  Age: 44 Year
  Sex: Female
  Weight: 72.562 kg

DRUGS (2)
  1. PARAGARD T 380A [Suspect]
     Active Substance: COPPER
     Indication: Contraception
     Route: 015
     Dates: start: 20170101
  2. PAROXETINE [Concomitant]
     Active Substance: PAROXETINE
     Dosage: 10 MG, 1X/DAY
     Route: 048
     Dates: start: 2007

REACTIONS (15)
  - Uterine polyp [Unknown]
  - Uterine leiomyoma [Unknown]
  - Ovarian cyst [Unknown]
  - Surgery [Recovered/Resolved]
  - Hysterectomy [Recovered/Resolved]
  - Oophorectomy [Recovered/Resolved]
  - Internal haemorrhage [Not Recovered/Not Resolved]
  - Device breakage [Recovered/Resolved]
  - Foreign body in reproductive tract [Recovered/Resolved]
  - Complication of device removal [Recovered/Resolved]
  - Embedded device [Recovered/Resolved]
  - Abnormal uterine bleeding [Not Recovered/Not Resolved]
  - Heavy menstrual bleeding [Unknown]
  - Menstruation irregular [Unknown]
  - Pain [Unknown]

NARRATIVE: CASE EVENT DATE: 20240101
